FAERS Safety Report 9168125 (Version 2)
Quarter: 2013Q2

REPORT INFORMATION
  Report Type: Spontaneous
  Country: JP (occurrence: None)
  Receive Date: 20130305
  Receipt Date: 20130410
  Transmission Date: 20140414
  Serious: Yes (Life-Threatening, Hospitalization)
  Sender: FDA-Public Use
  Company Number: AE-SPE-2013-005

PATIENT
  Age: 1 Year
  Sex: Male

DRUGS (11)
  1. MEIACT MS FINE GRANULES (CEFDITOREN PIVOXIL) [Suspect]
     Indication: C-REACTIVE PROTEIN ABNORMAL
     Route: 048
     Dates: start: 20120227, end: 20130210
  2. MEIACT MS FINE GRANULES (CEFDITOREN PIVOXIL) [Suspect]
     Indication: CHOLANGITIS
     Route: 048
     Dates: start: 20120227, end: 20130210
  3. MEIACT MS FINE GRANULES (CEFDITOREN PIVOXIL) [Suspect]
     Indication: PROPHYLAXIS
     Route: 048
     Dates: start: 20120227, end: 20130210
  4. URSODEOXYCHOLIC ACID [Concomitant]
  5. BUTYRIC ACID BACTERIA [Concomitant]
  6. ANTIBIOTICS-RESISTANT LACTIC ACID BACTERIAE [Concomitant]
  7. VITAMIN COMPLEX [Concomitant]
  8. TOCOPHEROL ACETATE [Concomitant]
  9. CALCIUM LACTATE HYDRATE [Concomitant]
  10. MENATETRENONE [Concomitant]
  11. ALFACALCIDOL [Concomitant]

REACTIONS (9)
  - Hypoglycaemia [None]
  - Carnitine decreased [None]
  - Musculoskeletal stiffness [None]
  - C-reactive protein increased [None]
  - Moaning [None]
  - Depressed level of consciousness [None]
  - Hyperhidrosis [None]
  - Incontinence [None]
  - Carnitine deficiency [None]
